FAERS Safety Report 24601401 (Version 1)
Quarter: 2024Q4

REPORT INFORMATION
  Report Type: Spontaneous
  Country: US (occurrence: US)
  Receive Date: 20241111
  Receipt Date: 20241111
  Transmission Date: 20250115
  Serious: No
  Sender: AJANTA PHARMA USA INC
  Company Number: US-AJANTA-2024AJA00146

PATIENT

DRUGS (1)
  1. CHOLESTYRAMINE [Suspect]
     Active Substance: CHOLESTYRAMINE
     Indication: Blood cholesterol
     Route: 048
     Dates: start: 20240821, end: 20240822

REACTIONS (4)
  - Choking sensation [Unknown]
  - Oropharyngeal discomfort [Unknown]
  - Product use complaint [Unknown]
  - Product physical consistency issue [Unknown]

NARRATIVE: CASE EVENT DATE: 20240821
